FAERS Safety Report 12780367 (Version 2)
Quarter: 2016Q4

REPORT INFORMATION
  Report Type: Spontaneous
  Country: AR (occurrence: AR)
  Receive Date: 20160926
  Receipt Date: 20161026
  Transmission Date: 20170207
  Serious: Yes (Other)
  Sender: FDA-Public Use
  Company Number: PHHY2016AR131266

PATIENT
  Age: 67 Year
  Sex: Male

DRUGS (2)
  1. ONBREZ BREEZHALER [Suspect]
     Active Substance: INDACATEROL
     Indication: CHRONIC OBSTRUCTIVE PULMONARY DISEASE
     Dosage: 1 DF, QD
     Route: 065
  2. ULTIBRO BREEZHALER [Suspect]
     Active Substance: GLYCOPYRRONIUM\INDACATEROL
     Indication: PRODUCT USED FOR UNKNOWN INDICATION
     Dosage: UNK
     Route: 065
     Dates: start: 201609

REACTIONS (8)
  - Catarrh [Unknown]
  - Nephrolithiasis [Unknown]
  - Drug ineffective [Recovered/Resolved]
  - Hernia pain [Unknown]
  - Chromaturia [Unknown]
  - Cough [Unknown]
  - Renal disorder [Unknown]
  - Renal cyst [Unknown]
